FAERS Safety Report 4971268-8 (Version None)
Quarter: 2006Q2

REPORT INFORMATION
  Report Type: 
  Country: None (occurrence: None)
  Receive Date: 20060413
  Receipt Date: 20051025
  Transmission Date: 20061013
  Serious: Yes (Hospitalization)
  Sender: FDA-Public Use
  Company Number: US-MERCK-0510USA09275

PATIENT
  Age: 69 Year
  Sex: Female
  Weight: 57 kg

DRUGS (8)
  1. VIOXX [Suspect]
     Indication: PAIN
     Route: 048
     Dates: start: 20040519
  2. VIOXX [Suspect]
     Route: 048
     Dates: start: 19991001, end: 20020601
  3. VIOXX [Suspect]
     Indication: ARTHRITIS
     Route: 048
     Dates: start: 20040519
  4. VIOXX [Suspect]
     Route: 048
     Dates: start: 19991001, end: 20020601
  5. TYLENOL (CAPLET) [Concomitant]
     Route: 065
  6. TIAZAC [Concomitant]
     Route: 065
  7. ATACAND [Concomitant]
     Route: 065
  8. PREMARIN [Concomitant]
     Route: 065

REACTIONS (35)
  - ACUTE MYOCARDIAL INFARCTION [None]
  - ANAEMIA [None]
  - ANGINA UNSTABLE [None]
  - ARTERIAL INJURY [None]
  - ATRIAL FIBRILLATION [None]
  - BACK PAIN [None]
  - BLOOD PRESSURE INCREASED [None]
  - BRONCHITIS ACUTE [None]
  - CARDIAC FAILURE CONGESTIVE [None]
  - CARDIOMYOPATHY [None]
  - CELLULITIS [None]
  - CHEST PAIN [None]
  - CHRONIC OBSTRUCTIVE PULMONARY DISEASE [None]
  - CORONARY ARTERY DISEASE [None]
  - DIARRHOEA [None]
  - DYSPHAGIA [None]
  - DYSPHONIA [None]
  - DYSURIA [None]
  - ECHOCARDIOGRAM ABNORMAL [None]
  - ELECTROLYTE IMBALANCE [None]
  - EMPHYSEMA [None]
  - HEART RATE INCREASED [None]
  - HYPERTENSION [None]
  - HYPOTHYROIDISM [None]
  - NEUROPATHY PERIPHERAL [None]
  - OSTEOPOROSIS [None]
  - PLATELET ADHESIVENESS INCREASED [None]
  - PULMONARY FIBROSIS [None]
  - PULMONARY OEDEMA [None]
  - RAYNAUD'S PHENOMENON [None]
  - RENAL HYPERTROPHY [None]
  - RHINITIS ALLERGIC [None]
  - SPINAL OSTEOARTHRITIS [None]
  - VENTRICULAR ARRHYTHMIA [None]
  - VENTRICULAR HYPERTROPHY [None]
